FAERS Safety Report 7275511-4 (Version None)
Quarter: 2011Q1

REPORT INFORMATION
  Report Type: 
  Country: None (occurrence: None)
  Receive Date: 20110204
  Receipt Date: 20110202
  Transmission Date: 20110831
  Serious: Yes (Death, Other)
  Sender: FDA-Public Use
  Company Number: US-GENZYME-FLUD-1000672

PATIENT

DRUGS (11)
  1. CYCLOPHOSPHAMIDE [Concomitant]
     Indication: PROPHYLAXIS AGAINST GRAFT VERSUS HOST DISEASE
  2. FLUDARA [Suspect]
     Indication: STEM CELL TRANSPLANT
     Dosage: 40 MG/M2 INFUSED OVER 30 MINUTES ON DAYS -6 AND -3
     Route: 042
  3. DOXORUBICIN [Concomitant]
     Indication: PROPHYLAXIS AGAINST GRAFT VERSUS HOST DISEASE
  4. MYCOPHENOLATE MOFETIL [Concomitant]
     Indication: PROPHYLAXIS AGAINST GRAFT VERSUS HOST DISEASE
  5. DOCETAXEL [Concomitant]
     Indication: PROPHYLAXIS AGAINST GRAFT VERSUS HOST DISEASE
  6. CYCLOSPORINE [Concomitant]
     Indication: PROPHYLAXIS AGAINST GRAFT VERSUS HOST DISEASE
  7. BUSULFAN [Suspect]
     Indication: STEM CELL TRANSPLANT
     Dosage: 130 TO 145 MG/M2, INFUSED OVER 4 HRS ON DAYS -6 AND -3
     Route: 042
  8. BUSULFAN [Suspect]
     Indication: BONE MARROW CONDITIONING REGIMEN
  9. FLUDARA [Suspect]
     Indication: BONE MARROW CONDITIONING REGIMEN
  10. METHOTREXATE [Concomitant]
     Indication: PROPHYLAXIS AGAINST GRAFT VERSUS HOST DISEASE
  11. SIROLIMUS [Concomitant]
     Indication: PROPHYLAXIS AGAINST GRAFT VERSUS HOST DISEASE

REACTIONS (8)
  - MULTI-ORGAN FAILURE [None]
  - DEATH [None]
  - EPSTEIN-BARR VIRUS ASSOCIATED LYMPHOPROLIFERATIVE DISORDER [None]
  - CHRONIC GRAFT VERSUS HOST DISEASE [None]
  - ACUTE MYELOID LEUKAEMIA RECURRENT [None]
  - IDIOPATHIC PNEUMONIA SYNDROME [None]
  - ACUTE GRAFT VERSUS HOST DISEASE [None]
  - INFECTION [None]
